FAERS Safety Report 15132882 (Version 1)
Quarter: 2018Q3

REPORT INFORMATION
  Report Type: Spontaneous
  Country: US (occurrence: US)
  Receive Date: 20180712
  Receipt Date: 20180712
  Transmission Date: 20181010
  Serious: Yes (Hospitalization)
  Sender: FDA-Public Use
  Company Number: US-TWI PHARMACEUTICAL, INC-2018SCTW000011

PATIENT

DRUGS (1)
  1. NIFEDIPINE. [Suspect]
     Active Substance: NIFEDIPINE
     Indication: PRODUCT USED FOR UNKNOWN INDICATION
     Dosage: CRUSHED HIS NIFEDIPINE ER 90MG PILL AND ADMINISTERED IT THROUGH THE PATIENT^S NASAL DUODENAL TUBE
     Route: 050

REACTIONS (5)
  - Hyperglycaemia [Unknown]
  - Hypotension [Recovered/Resolved]
  - Wrong technique in product usage process [Unknown]
  - Toxicity to various agents [Unknown]
  - Depressed level of consciousness [Unknown]
